FAERS Safety Report 5936695-0 (Version None)
Quarter: 2008Q4

REPORT INFORMATION
  Report Type: 
  Country: None (occurrence: None)
  Receive Date: 20081030
  Receipt Date: 20081020
  Transmission Date: 20090506
  Serious: Yes (Hospitalization, Other)
  Sender: FDA-Public Use
  Company Number: FR-MERCK-0810USA04588

PATIENT
  Age: 50 Year
  Sex: Female

DRUGS (6)
  1. MODURETIC 5-50 [Suspect]
     Route: 048
     Dates: start: 20040701, end: 20080915
  2. THERALENE [Suspect]
     Route: 065
     Dates: start: 20080905, end: 20080914
  3. PROZAC [Suspect]
     Route: 048
     Dates: start: 20080826, end: 20080914
  4. KENZEN [Suspect]
     Route: 048
     Dates: start: 20040701, end: 20080915
  5. ASPEGIC 325 [Concomitant]
     Route: 065
     Dates: start: 20040701
  6. PLAQUENIL [Concomitant]
     Route: 065
     Dates: start: 20040701

REACTIONS (5)
  - DEEP VEIN THROMBOSIS [None]
  - LEUKOPENIA [None]
  - PULMONARY EMBOLISM [None]
  - THROMBOCYTOPENIA [None]
  - VAGINAL HAEMORRHAGE [None]
